FAERS Safety Report 16210157 (Version 3)
Quarter: 2019Q4

REPORT INFORMATION
  Report Type: Spontaneous
  Country: CZ (occurrence: CZ)
  Receive Date: 20190417
  Receipt Date: 20191219
  Transmission Date: 20200122
  Serious: Yes (Hospitalization)
  Sender: FDA-Public Use
  Company Number: CZ-SUN PHARMACEUTICAL INDUSTRIES LTD-2019R1-205469

PATIENT
  Age: 17 Year
  Sex: Male
  Weight: 71 kg

DRUGS (1)
  1. COFFI TABS [CAFFEINE\DIETARY SUPPLEMENT] [Suspect]
     Active Substance: CAFFEINE\DIETARY SUPPLEMENT
     Indication: PRODUCT USED FOR UNKNOWN INDICATION
     Dosage: UNK, (LARGE AMOUNT OF CAFFEINE PILLS)
     Route: 048

REACTIONS (2)
  - Rhabdomyolysis [Unknown]
  - Toxicity to various agents [Unknown]
